FAERS Safety Report 16223214 (Version 1)
Quarter: 2019Q2

REPORT INFORMATION
  Report Type: Spontaneous
  Country: US (occurrence: US)
  Receive Date: 20190420
  Receipt Date: 20190420
  Transmission Date: 20190711
  Serious: Yes (Other)
  Sender: FDA-Public Use
  Company Number: None

PATIENT
  Age: 37 Year
  Sex: Male
  Weight: 98.1 kg

DRUGS (1)
  1. VIVITROL [Suspect]
     Active Substance: NALTREXONE
     Indication: DRUG DEPENDENCE
     Dates: start: 20190417

REACTIONS (3)
  - Depressed mood [None]
  - Insomnia [None]
  - Dyspnoea [None]

NARRATIVE: CASE EVENT DATE: 20190419
